FAERS Safety Report 18229320 (Version 1)
Quarter: 2020Q3

REPORT INFORMATION
  Report Type: Spontaneous
  Country: US (occurrence: US)
  Receive Date: 20200903
  Receipt Date: 20200903
  Transmission Date: 20201103
  Serious: Yes (Other)
  Sender: FDA-Public Use
  Company Number: US-JNJFOC-20200838067

PATIENT
  Sex: Male
  Weight: 81.72 kg

DRUGS (3)
  1. REVLIMID [Suspect]
     Active Substance: LENALIDOMIDE
     Indication: PLASMA CELL MYELOMA
     Dosage: DISCONTINUED DUE TO GI PROBLEMS AND ^SUCH^
     Route: 065
     Dates: start: 2017, end: 2017
  2. DARZALEX [Suspect]
     Active Substance: DARATUMUMAB
     Indication: PLASMA CELL MYELOMA
     Dosage: WAS DISCONTINUED 2 MONTHS AGO
     Route: 042
     Dates: start: 2017, end: 2020
  3. DARZALEX FASPRO [Suspect]
     Active Substance: DARATUMUMAB\HYALURONIDASE-FIHJ
     Indication: PLASMA CELL MYELOMA
     Dosage: MOST RECENT DOSE  AUG?2020.
     Route: 058
     Dates: start: 202007

REACTIONS (3)
  - Prostate cancer [Unknown]
  - Blood immunoglobulin G decreased [Unknown]
  - Infection [Unknown]

NARRATIVE: CASE EVENT DATE: 2020
